FAERS Safety Report 11500640 (Version 1)
Quarter: 2015Q3

REPORT INFORMATION
  Report Type: Spontaneous
  Country: None (occurrence: None)
  Receive Date: 20150911
  Receipt Date: 20150911
  Transmission Date: 20151125
  Serious: No
  Sender: FDA-Public Use
  Company Number: None

PATIENT
  Age: 69 Year
  Sex: Female
  Weight: 57.15 kg

DRUGS (1)
  1. METOPROLOL XL [Suspect]
     Active Substance: METOPROLOL
     Indication: HYPERTENSION
     Route: 048
     Dates: start: 20150831

REACTIONS (4)
  - Confusional state [None]
  - Peripheral swelling [None]
  - Hallucination [None]
  - Peripheral coldness [None]

NARRATIVE: CASE EVENT DATE: 20150831
